FAERS Safety Report 14224083 (Version 1)
Quarter: 2017Q4

REPORT INFORMATION
  Report Type: Spontaneous
  Country: US (occurrence: US)
  Receive Date: 20171125
  Receipt Date: 20171125
  Transmission Date: 20180321
  Serious: Yes (Disabling)
  Sender: FDA-Public Use
  Company Number: None

PATIENT
  Age: 32 Year
  Sex: Male
  Weight: 132.75 kg

DRUGS (8)
  1. ZINC. [Concomitant]
     Active Substance: ZINC
  2. LEXAPRO [Suspect]
     Active Substance: ESCITALOPRAM OXALATE
     Indication: DEPRESSION
     Dosage: ?          QUANTITY:1 TABLET(S);?
     Route: 048
     Dates: start: 20161103, end: 20171103
  3. FOLIC ACID. [Concomitant]
     Active Substance: FOLIC ACID
  4. CALCIUM [Concomitant]
     Active Substance: CALCIUM
  5. MAGNESIUM [Concomitant]
     Active Substance: MAGNESIUM
  6. L-ARGININE [Concomitant]
     Active Substance: ARGININE
  7. OMEPRAZOLE. [Concomitant]
     Active Substance: OMEPRAZOLE
  8. COENZYME Q-10 [Concomitant]

REACTIONS (6)
  - Premature ejaculation [None]
  - Depression [None]
  - Mood swings [None]
  - Anxiety [None]
  - Restlessness [None]
  - Penile pain [None]

NARRATIVE: CASE EVENT DATE: 20171108
